FAERS Safety Report 7945927-9 (Version None)
Quarter: 2011Q4

REPORT INFORMATION
  Report Type: 
  Country: None (occurrence: None)
  Receive Date: 20111129
  Receipt Date: 20111122
  Transmission Date: 20120403
  Serious: Yes (Other)
  Sender: FDA-Public Use
  Company Number: PHHY2011JP92809

PATIENT
  Age: 48 Year
  Sex: Female

DRUGS (3)
  1. HORMONES [Concomitant]
  2. TAMOXIFEN CITRATE [Concomitant]
  3. ZOMETA [Suspect]
     Dosage: 4 MG,
     Route: 042
     Dates: start: 20060901

REACTIONS (3)
  - OSTEONECROSIS OF JAW [None]
  - SWELLING [None]
  - IMPAIRED HEALING [None]
